FAERS Safety Report 8167554-3 (Version None)
Quarter: 2012Q1

REPORT INFORMATION
  Report Type: 
  Country: None (occurrence: None)
  Receive Date: 20120221
  Receipt Date: 20120208
  Transmission Date: 20120608
  Serious: Yes (Other)
  Sender: FDA-Public Use
  Company Number: US-1190322

PATIENT
  Age: 83 Year
  Sex: Female

DRUGS (3)
  1. TRIFLURIDINE [Suspect]
     Dosage: OPHTHALMIC
  2. MURO 128 [Concomitant]
  3. PATADAY [Concomitant]

REACTIONS (3)
  - EYE PAIN [None]
  - STEVENS-JOHNSON SYNDROME [None]
  - VISION BLURRED [None]
